FAERS Safety Report 9527903 (Version 1)
Quarter: 2013Q1

REPORT INFORMATION
  Report Type: Spontaneous
  Country: US (occurrence: None)
  Receive Date: 20130313
  Receipt Date: 20130313
  Transmission Date: 20140127
  Serious: Yes (Other)
  Sender: FDA-Public Use
  Company Number: 1000031296

PATIENT
  Age: 63 Year
  Sex: Female

DRUGS (3)
  1. SAVELLA [Suspect]
     Route: 048
  2. AMBIEN (ZOLPIDEM TARTRATE) (ZOLPIDEM TARTRATE) [Concomitant]
  3. MIRAPEX (PRAMIPEXOLE DIHDROCHLORIDE) (PRAMIPEXOLE DIHYDROCHLORIDE) [Concomitant]

REACTIONS (3)
  - Palpitations [None]
  - Dyspnoea [None]
  - Nausea [None]
